FAERS Safety Report 23950970 (Version 1)
Quarter: 2024Q2

REPORT INFORMATION
  Report Type: Report from Study
  Country: US (occurrence: US)
  Receive Date: 20240607
  Receipt Date: 20240607
  Transmission Date: 20240715
  Serious: No
  Sender: FDA-Public Use
  Company Number: US-SPRINGWORKS THERAPEUTICS-SW-001449

PATIENT
  Age: 33 Year
  Sex: Male
  Weight: 95.238 kg

DRUGS (2)
  1. NIROGACESTAT [Suspect]
     Active Substance: NIROGACESTAT
     Indication: Product used for unknown indication
     Dosage: 150 MG, BID
     Route: 048
     Dates: start: 20240314, end: 20240412
  2. OMEPRAZOLE [Concomitant]
     Active Substance: DONEPEZIL HYDROCHLORIDE\OMEPRAZOLE\OMEPRAZOLE MAGNESIUM
     Indication: Product used for unknown indication

REACTIONS (9)
  - Gastrooesophageal reflux disease [Unknown]
  - Dysgeusia [Unknown]
  - Malaise [Recovered/Resolved]
  - Hepatic enzyme increased [Not Recovered/Not Resolved]
  - Nasopharyngitis [Unknown]
  - Rash [Unknown]
  - Fatigue [Recovering/Resolving]
  - Diarrhoea [Recovering/Resolving]
  - Intentional dose omission [Unknown]

NARRATIVE: CASE EVENT DATE: 20240321
